FAERS Safety Report 6371582-8 (Version None)
Quarter: 2009Q3

REPORT INFORMATION
  Report Type: 
  Country: None (occurrence: None)
  Receive Date: 20090923
  Receipt Date: 20071115
  Transmission Date: 20100115
  Serious: Yes (Other)
  Sender: FDA-Public Use
  Company Number: US-ASTRAZENECA-2007UW18692

PATIENT
  Age: 47 Year
  Sex: Male
  Weight: 105.7 kg

DRUGS (22)
  1. SEROQUEL [Suspect]
     Indication: DEPRESSION
     Route: 048
     Dates: start: 20020101
  2. SEROQUEL [Suspect]
     Indication: ANXIETY
     Route: 048
     Dates: start: 20020101
  3. SEROQUEL [Suspect]
     Dosage: 25MG -100MG
     Route: 048
     Dates: start: 20030904
  4. SEROQUEL [Suspect]
     Dosage: 25MG -100MG
     Route: 048
     Dates: start: 20030904
  5. PROTONIX [Concomitant]
     Indication: GASTROOESOPHAGEAL REFLUX DISEASE
     Route: 048
     Dates: start: 20040405
  6. LISINOPRIL [Concomitant]
     Dosage: 10MG-20MG
     Route: 048
     Dates: start: 20040405
  7. EFFEXOR XR [Concomitant]
     Dosage: 75MG - 225MG
     Route: 048
     Dates: start: 20040405
  8. NAPROSYN [Concomitant]
     Route: 048
     Dates: start: 20040405
  9. DOXEPIN HCL [Concomitant]
     Route: 048
     Dates: start: 20040405
  10. ZANTAC [Concomitant]
     Route: 048
     Dates: start: 20040405
  11. KLONOPIN [Concomitant]
     Indication: ANXIETY
     Route: 048
     Dates: start: 20040405
  12. GEMFIBROZIL [Concomitant]
     Route: 048
     Dates: start: 20040902
  13. OXYCODONE [Concomitant]
     Indication: PAIN
     Route: 048
     Dates: start: 20050113
  14. HYTRIN [Concomitant]
     Route: 048
     Dates: start: 20060417
  15. VICODIN [Concomitant]
     Dosage: 5-500MG
     Route: 048
  16. GABAPENTIN [Concomitant]
     Route: 048
  17. ASPIRIN [Concomitant]
     Route: 048
  18. DOCUSATE [Concomitant]
     Route: 048
  19. MORPHINE [Concomitant]
     Dosage: 2MG -8MG
     Route: 042
  20. MAALOX [Concomitant]
     Route: 048
  21. PROMETHAZINE [Concomitant]
     Route: 030
  22. ZYPREXA [Concomitant]
     Dates: start: 20030206

REACTIONS (5)
  - DIABETES MELLITUS [None]
  - INSULIN RESISTANCE [None]
  - PANCREATITIS [None]
  - TYPE 2 DIABETES MELLITUS [None]
  - WEIGHT INCREASED [None]
